FAERS Safety Report 10239048 (Version 2)
Quarter: 2014Q4

REPORT INFORMATION
  Report Type: Spontaneous
  Country: DK (occurrence: DK)
  Receive Date: 20140616
  Receipt Date: 20141030
  Transmission Date: 20150528
  Serious: Yes (Death, Other)
  Sender: FDA-Public Use
  Company Number: DK-PFIZER INC-2014160445

PATIENT
  Age: 52 Year
  Sex: Male
  Weight: 89 kg

DRUGS (1)
  1. VIAGRA [Suspect]
     Active Substance: SILDENAFIL CITRATE
     Indication: ERECTILE DYSFUNCTION
     Dosage: STRENGTH: 100 MG
     Route: 048
     Dates: end: 20140226

REACTIONS (6)
  - Paraesthesia [Unknown]
  - Musculoskeletal chest pain [Unknown]
  - Myocarditis [Fatal]
  - Hypoaesthesia [Unknown]
  - Cardiac death [Fatal]
  - Muscular weakness [Unknown]

NARRATIVE: CASE EVENT DATE: 2013
